FAERS Safety Report 10154378 (Version 1)
Quarter: 2014Q2

REPORT INFORMATION
  Report Type: Spontaneous
  Country: US (occurrence: US)
  Receive Date: 20140506
  Receipt Date: 20140506
  Transmission Date: 20141212
  Serious: Yes (Other)
  Sender: FDA-Public Use
  Company Number: US-PFIZER INC-2014121735

PATIENT
  Sex: Female

DRUGS (1)
  1. EFFEXOR XR [Suspect]
     Dosage: UNK

REACTIONS (5)
  - Myocardial infarction [Unknown]
  - Loss of consciousness [Unknown]
  - Dizziness [Unknown]
  - Blood pressure increased [Unknown]
  - Blood glucose increased [Unknown]
